FAERS Safety Report 13927791 (Version 3)
Quarter: 2017Q4

REPORT INFORMATION
  Report Type: Spontaneous
  Country: US (occurrence: US)
  Receive Date: 20170901
  Receipt Date: 20171003
  Transmission Date: 20180320
  Serious: No
  Sender: FDA-Public Use
  Company Number: US-PFIZER INC-2017369237

PATIENT
  Age: 74 Year
  Sex: Male
  Weight: 82.55 kg

DRUGS (4)
  1. VIAGRA [Suspect]
     Active Substance: SILDENAFIL CITRATE
     Dosage: 50 MG, TWICE A MONTH
     Dates: start: 201705
  2. VIAGRA [Suspect]
     Active Substance: SILDENAFIL CITRATE
     Dosage: UNK, (MID AUG2017)
     Dates: start: 201708
  3. VIAGRA [Suspect]
     Active Substance: SILDENAFIL CITRATE
     Indication: LOSS OF LIBIDO
     Dosage: UNK
     Dates: start: 2014
  4. VIAGRA [Suspect]
     Active Substance: SILDENAFIL CITRATE
     Dosage: UNK, TWICE A MONTH IN MID JUL2017 AND AT END OF JUL2017
     Dates: start: 201707

REACTIONS (2)
  - Sexual dysfunction [Recovered/Resolved]
  - Product use in unapproved indication [Unknown]

NARRATIVE: CASE EVENT DATE: 201705
